FAERS Safety Report 7433406-7 (Version None)
Quarter: 2011Q2

REPORT INFORMATION
  Report Type: 
  Country: None (occurrence: None)
  Receive Date: 20110422
  Receipt Date: 20110414
  Transmission Date: 20111010
  Serious: Yes (Hospitalization, Other)
  Sender: FDA-Public Use
  Company Number: US-ELI_LILLY_AND_COMPANY-US201104004677

PATIENT
  Sex: Female

DRUGS (2)
  1. HUMALOG [Suspect]
     Indication: DIABETES MELLITUS
     Dosage: UNK, PRN
  2. LANTUS [Concomitant]
     Dosage: UNK, EACH EVENING

REACTIONS (8)
  - SKELETAL INJURY [None]
  - MEMORY IMPAIRMENT [None]
  - DIABETIC COMA [None]
  - RENAL FAILURE [None]
  - COUGH [None]
  - SCOTOMA [None]
  - CARDIAC FAILURE [None]
  - INJECTION SITE PAIN [None]
